FAERS Safety Report 13736484 (Version 3)
Quarter: 2017Q3

REPORT INFORMATION
  Report Type: Spontaneous
  Country: KR (occurrence: KR)
  Receive Date: 20170710
  Receipt Date: 20170824
  Transmission Date: 20171127
  Serious: No
  Sender: FDA-Public Use
  Company Number: KR-009507513-1611KOR013998

PATIENT
  Age: 69 Year
  Sex: Male

DRUGS (53)
  1. EMEND (FOSAPREPITANT DIMEGLUMINE) [Suspect]
     Active Substance: FOSAPREPITANT DIMEGLUMINE
     Dosage: 150 MG, ONCE
     Route: 042
     Dates: start: 20160405, end: 20160405
  2. EMEND (FOSAPREPITANT DIMEGLUMINE) [Suspect]
     Active Substance: FOSAPREPITANT DIMEGLUMINE
     Dosage: 150 MG, ONCE
     Route: 042
     Dates: start: 20160510, end: 20160510
  3. ALIMTA [Concomitant]
     Active Substance: PEMETREXED DISODIUM
     Dosage: 875 MG, ONCE, CYCLE 3
     Route: 042
     Dates: start: 20160405, end: 20160405
  4. DEXAMETHASONE. [Concomitant]
     Active Substance: DEXAMETHASONE
     Dosage: 0.5 MG, QD
     Route: 048
     Dates: start: 20160511, end: 20160513
  5. DEXAMETHASONE. [Concomitant]
     Active Substance: DEXAMETHASONE
     Dosage: 0.5 MG, QD
     Route: 048
     Dates: start: 20160601, end: 20160603
  6. ALOXI [Concomitant]
     Active Substance: PALONOSETRON HYDROCHLORIDE
     Dosage: 0.25 MG, ONCE
     Route: 042
     Dates: start: 20160531, end: 20160531
  7. MACPERAN [Concomitant]
     Active Substance: METOCLOPRAMIDE HYDROCHLORIDE
     Indication: PROPHYLAXIS OF NAUSEA AND VOMITING
     Dosage: 10 MG, ONCE
     Route: 042
     Dates: start: 20160315, end: 20160315
  8. POTASSIUM CHLORIDE. [Concomitant]
     Active Substance: POTASSIUM CHLORIDE
     Dosage: 0.5 AMPLE, ONCE
     Route: 042
     Dates: start: 20160510, end: 20160510
  9. CISPLATIN. [Concomitant]
     Active Substance: CISPLATIN
     Dosage: 131 MG, ONCE, CYCLE 3, (STRENGTH REPORTED AS 10MG/20ML)
     Route: 042
     Dates: start: 20160510, end: 20160510
  10. PLAKON [Concomitant]
     Indication: PROPHYLAXIS OF NAUSEA AND VOMITING
     Dosage: ONCE, STRENGTH REPORTED AS 3MG/2ML1.5 MG, ONCE
     Route: 042
     Dates: start: 20160315, end: 20160315
  11. MACPERAN [Concomitant]
     Active Substance: METOCLOPRAMIDE HYDROCHLORIDE
     Dosage: 10 MG, ONCE
     Route: 042
     Dates: start: 20160405, end: 20160405
  12. POTASSIUM CHLORIDE. [Concomitant]
     Active Substance: POTASSIUM CHLORIDE
     Dosage: 0.5 AMPLE, ONCE
     Route: 042
     Dates: start: 20160531, end: 20160531
  13. CISPLATIN. [Concomitant]
     Active Substance: CISPLATIN
     Indication: LUNG NEOPLASM MALIGNANT
     Dosage: 120 MG, ONCE, CYCLE 1, (STRENGTH REPORTED AS 10MG/20ML)
     Route: 042
     Dates: start: 20160315, end: 20160315
  14. DEXA S [Concomitant]
     Indication: PROPHYLAXIS OF NAUSEA AND VOMITING
     Dosage: 5 MG, ONCE, STRENGTH : 5MG/ML
     Route: 042
     Dates: start: 20160315, end: 20160315
  15. FOLIC ACID. [Concomitant]
     Active Substance: FOLIC ACID
     Indication: PROPHYLAXIS
     Dosage: 1 MG, DAILY
     Route: 048
     Dates: start: 20160307
  16. POTASSIUM CHLORIDE. [Concomitant]
     Active Substance: POTASSIUM CHLORIDE
     Indication: PROPHYLAXIS
     Dosage: 0.5 AMPLE, UNK
     Route: 042
     Dates: start: 20160315, end: 20160315
  17. LASIX [Concomitant]
     Active Substance: FUROSEMIDE
     Dosage: 20 MG, ONCE
     Route: 042
     Dates: start: 20160405, end: 20160405
  18. LASIX [Concomitant]
     Active Substance: FUROSEMIDE
     Dosage: 20 MG, ONCE
     Route: 042
     Dates: start: 20160531, end: 20160531
  19. TANTUM [Concomitant]
     Active Substance: BENZYDAMINE HYDROCHLORIDE
     Indication: PROPHYLAXIS
     Dosage: 200 ML, ONCE, FORMULATION: GARGLE
     Dates: start: 20160315, end: 20160315
  20. CISPLATIN. [Concomitant]
     Active Substance: CISPLATIN
     Dosage: 131 MG, ONCE, CYCLE 2, (STRENGTH REPORTED AS 10MG/20ML)
     Route: 042
     Dates: start: 20160405, end: 20160405
  21. DEXA S [Concomitant]
     Dosage: 5 MG, ONCE, STRENGTH : 5MG/ML
     Route: 042
     Dates: start: 20160510, end: 20160510
  22. DEXA S [Concomitant]
     Dosage: 5 MG, ONCE, STRENGTH : 5MG/ML
     Route: 042
     Dates: start: 20160531, end: 20160531
  23. DEXAMETHASONE. [Concomitant]
     Active Substance: DEXAMETHASONE
     Indication: PROPHYLAXIS OF NAUSEA AND VOMITING
     Dosage: 0.5 MG, QD
     Route: 048
     Dates: start: 20160316, end: 20160318
  24. ALOXI [Concomitant]
     Active Substance: PALONOSETRON HYDROCHLORIDE
     Dosage: 0.25 MG, ONCE
     Route: 042
     Dates: start: 20160405, end: 20160405
  25. MAGNESIN (MAGNESIUM SULFATE) [Concomitant]
     Indication: PROPHYLAXIS
     Dosage: 1 G, BID
     Route: 042
     Dates: start: 20160315, end: 20160315
  26. POTASSIUM CHLORIDE. [Concomitant]
     Active Substance: POTASSIUM CHLORIDE
     Dosage: 0.5 AMPLE, BID
     Route: 042
     Dates: start: 20160405, end: 20160405
  27. LASIX [Concomitant]
     Active Substance: FUROSEMIDE
     Dosage: 20 MG, ONCE
     Route: 042
     Dates: start: 20160510, end: 20160510
  28. ALIMTA [Concomitant]
     Active Substance: PEMETREXED DISODIUM
     Dosage: 875 MG, ONCE, CYCLE 2
     Route: 042
     Dates: start: 20160405, end: 20160405
  29. ALIMTA [Concomitant]
     Active Substance: PEMETREXED DISODIUM
     Dosage: 875 MG, ONCE, CYCLE 3
     Route: 042
     Dates: start: 20160510, end: 20160510
  30. ALOXI [Concomitant]
     Active Substance: PALONOSETRON HYDROCHLORIDE
     Indication: PROPHYLAXIS OF NAUSEA AND VOMITING
     Dosage: 0.25 MG, ONCE
     Route: 042
     Dates: start: 20160315, end: 20160315
  31. PLAKON [Concomitant]
     Dosage: 1.5 MG, ONCE
     Route: 042
     Dates: start: 20160405, end: 20160405
  32. MAGNESIN (MAGNESIUM SULFATE) [Concomitant]
     Dosage: 1 G, BID
     Route: 042
     Dates: start: 20160405, end: 20160405
  33. DAEWON ES [Concomitant]
     Indication: PROPHYLAXIS
     Dosage: 5 ML, QD
     Route: 048
     Dates: start: 20160315
  34. ALIMTA [Concomitant]
     Active Substance: PEMETREXED DISODIUM
     Dosage: 920 MG, ONCE, CYCLE 4
     Route: 042
     Dates: start: 20160531, end: 20160531
  35. DEXA S [Concomitant]
     Dosage: 5 MG, ONCE, STRENGTH : 5MG/ML
     Route: 042
     Dates: start: 20160405, end: 20160405
  36. DEXAMETHASONE. [Concomitant]
     Active Substance: DEXAMETHASONE
     Dosage: 0.5 MG, QD
     Route: 048
     Dates: start: 20160406, end: 20160408
  37. PLAKON [Concomitant]
     Dosage: 1.5 MG, ONCE
     Route: 042
     Dates: start: 20160510, end: 20160510
  38. PLAKON [Concomitant]
     Dosage: 1.5 MG, ONCE
     Route: 042
     Dates: start: 20160531, end: 20160531
  39. LASIX [Concomitant]
     Active Substance: FUROSEMIDE
     Indication: PROPHYLAXIS
     Dosage: 20MG, ONCE, STRENGTH : 20MG/2ML
     Route: 042
     Dates: start: 20160315, end: 20160315
  40. HARMONILAN [Concomitant]
     Indication: PROPHYLAXIS
     Dosage: 200 ML, TID
     Route: 048
     Dates: start: 20160315, end: 20160321
  41. MACPERAN [Concomitant]
     Active Substance: METOCLOPRAMIDE HYDROCHLORIDE
     Dosage: 5 MG, TID
     Route: 048
     Dates: start: 20160315, end: 20160315
  42. MACPERAN [Concomitant]
     Active Substance: METOCLOPRAMIDE HYDROCHLORIDE
     Dosage: 5 MG, TID
     Route: 048
     Dates: start: 20160510, end: 20160510
  43. EMEND (FOSAPREPITANT DIMEGLUMINE) [Suspect]
     Active Substance: FOSAPREPITANT DIMEGLUMINE
     Indication: PROPHYLAXIS OF NAUSEA AND VOMITING
     Dosage: 150 MG, ONCE
     Route: 042
     Dates: start: 20160315, end: 20160315
  44. EMEND (FOSAPREPITANT DIMEGLUMINE) [Suspect]
     Active Substance: FOSAPREPITANT DIMEGLUMINE
     Dosage: 150 MG, ONCE
     Route: 042
     Dates: start: 20160531, end: 20160531
  45. ALOXI [Concomitant]
     Active Substance: PALONOSETRON HYDROCHLORIDE
     Dosage: 0.25 MG, ONCE
     Route: 042
     Dates: start: 20160510, end: 20160510
  46. MACPERAN [Concomitant]
     Active Substance: METOCLOPRAMIDE HYDROCHLORIDE
     Dosage: 10 MG, ONCE
     Route: 042
     Dates: start: 20160510, end: 20160510
  47. MAGNESIN (MAGNESIUM SULFATE) [Concomitant]
     Dosage: 1 G, BID
     Route: 042
     Dates: start: 20160510, end: 20160510
  48. MACPERAN [Concomitant]
     Active Substance: METOCLOPRAMIDE HYDROCHLORIDE
     Dosage: 5 MG, TID
     Route: 048
     Dates: start: 20160405, end: 20160405
  49. CISPLATIN. [Concomitant]
     Active Substance: CISPLATIN
     Dosage: 138 MG, ONCE, CYCLE 4, (STRENGTH REPORTED AS 10MG/20ML)
     Route: 042
     Dates: start: 20160531, end: 20160531
  50. ALIMTA [Concomitant]
     Active Substance: PEMETREXED DISODIUM
     Indication: LUNG NEOPLASM MALIGNANT
     Dosage: 800 MG, ONCE, CYCLE 1
     Route: 042
     Dates: start: 20160315, end: 20160315
  51. MACPERAN [Concomitant]
     Active Substance: METOCLOPRAMIDE HYDROCHLORIDE
     Dosage: 10 MG, ONCE
     Route: 042
     Dates: start: 20160531, end: 20160531
  52. MAGNESIN (MAGNESIUM SULFATE) [Concomitant]
     Dosage: 1 G, BID
     Route: 042
     Dates: start: 20160531, end: 20160531
  53. MACPERAN [Concomitant]
     Active Substance: METOCLOPRAMIDE HYDROCHLORIDE
     Dosage: 5 MG, TID
     Route: 048
     Dates: start: 20160531, end: 20160531

REACTIONS (3)
  - Temporomandibular joint syndrome [Recovered/Resolved]
  - Constipation [Recovered/Resolved]
  - Herpes zoster [Recovered/Resolved]

NARRATIVE: CASE EVENT DATE: 20160324
